FAERS Safety Report 5402229-2 (Version None)
Quarter: 2007Q3

REPORT INFORMATION
  Report Type: 
  Country: None (occurrence: None)
  Receive Date: 20070727
  Receipt Date: 20070723
  Transmission Date: 20080115
  Serious: Yes (Hospitalization)
  Sender: FDA-Public Use
  Company Number: 2007SP014785

PATIENT
  Age: 40 Year
  Sex: Male
  Weight: 110.6777 kg

DRUGS (2)
  1. PEG-INTRON [Suspect]
     Indication: HEPATITIS C
     Dosage: SC
     Route: 058
     Dates: start: 20070521
  2. RIBAVIRIN [Suspect]
     Indication: HEPATITIS C
     Dosage: PO
     Route: 048
     Dates: start: 20070521

REACTIONS (7)
  - CHOLELITHIASIS [None]
  - HEPATITIS [None]
  - INCISION SITE INFECTION [None]
  - INSOMNIA [None]
  - PURULENT DISCHARGE [None]
  - SLEEP DISORDER [None]
  - WEIGHT DECREASED [None]
